FAERS Safety Report 6608679-0 (Version None)
Quarter: 2010Q1

REPORT INFORMATION
  Report Type: 
  Country: None (occurrence: None)
  Receive Date: 20100224
  Receipt Date: 20100224
  Transmission Date: 20100710
  Serious: No
  Sender: FDA-Public Use
  Company Number: None

PATIENT
  Age: 56 Year
  Sex: Male
  Weight: 57.1532 kg

DRUGS (2)
  1. BENZTROPINE MESYLATE [Suspect]
     Dosage: 1 MG BID PO
     Route: 048
  2. HALOPERIDOL DECANOATE [Concomitant]

REACTIONS (1)
  - CONFUSIONAL STATE [None]
